FAERS Safety Report 7272453-5 (Version None)
Quarter: 2011Q1

REPORT INFORMATION
  Report Type: 
  Country: None (occurrence: None)
  Receive Date: 20110203
  Receipt Date: 20110125
  Transmission Date: 20110831
  Serious: Yes (Other)
  Sender: FDA-Public Use
  Company Number: ES-ASTELLAS-2011US000368

PATIENT

DRUGS (1)
  1. AMBISOME [Suspect]
     Indication: CUTANEOUS LEISHMANIASIS
     Dosage: 90 MG, TOTAL DOSE
     Route: 042
     Dates: start: 20101213, end: 20101213

REACTIONS (6)
  - VASOCONSTRICTION [None]
  - HYPERHIDROSIS [None]
  - HYPOTENSION [None]
  - ANAPHYLACTIC SHOCK [None]
  - ABDOMINAL PAIN [None]
  - COUGH [None]
